FAERS Safety Report 21332662 (Version 2)
Quarter: 2022Q3

REPORT INFORMATION
  Report Type: Spontaneous
  Country: US (occurrence: US)
  Receive Date: 20220914
  Receipt Date: 20220928
  Transmission Date: 20221026
  Serious: Yes (Death)
  Sender: FDA-Public Use
  Company Number: US-PFIZER INC-202201156819

PATIENT
  Age: 69 Year
  Sex: Male
  Weight: 99.773 kg

DRUGS (1)
  1. PAXLOVID [Suspect]
     Active Substance: NIRMATRELVIR\RITONAVIR
     Indication: COVID-19 treatment
     Dosage: 300MG: 100 MG DOSE PACK TWICE PER DAY
     Dates: start: 20220601, end: 20220605

REACTIONS (4)
  - Dyspnoea [Fatal]
  - Loss of consciousness [Fatal]
  - Muscular weakness [Fatal]
  - Personality change [Fatal]

NARRATIVE: CASE EVENT DATE: 20220820
